FAERS Safety Report 7435052-8 (Version None)
Quarter: 2011Q2

REPORT INFORMATION
  Report Type: 
  Country: None (occurrence: None)
  Receive Date: 20110425
  Receipt Date: 20110413
  Transmission Date: 20111010
  Serious: Yes (Hospitalization)
  Sender: FDA-Public Use
  Company Number: PHHY2011US22044

PATIENT
  Sex: Female
  Weight: 59 kg

DRUGS (2)
  1. EXJADE [Suspect]
     Indication: BLOOD TEST ABNORMAL
     Dosage: 875 MG, DAILY
     Route: 048
     Dates: start: 20100806
  2. EXJADE [Suspect]
     Indication: IRON OVERLOAD

REACTIONS (1)
  - NEOPLASM MALIGNANT [None]
